FAERS Safety Report 4330477-1 (Version None)
Quarter: 2004Q1

REPORT INFORMATION
  Report Type: 
  Country: None (occurrence: None)
  Receive Date: 20040329
  Receipt Date: 20040316
  Transmission Date: 20041129
  Serious: Yes (Hospitalization)
  Sender: FDA-Public Use
  Company Number: GB-JNJFOC-20040303659

PATIENT
  Age: 69 Year
  Sex: Male

DRUGS (10)
  1. REMICADE [Suspect]
     Indication: RHEUMATOID ARTHRITIS
     Dosage: 225 MG, INTRAVENOUS
     Route: 042
     Dates: start: 20030410
  2. METHOTREXATE [Concomitant]
  3. PREDNISOLONE [Concomitant]
  4. FOLIC ACID [Concomitant]
  5. DIHYDROCODEINE (DIHYDROCODEINE) [Concomitant]
  6. FERROUS SULFATE TAB [Concomitant]
  7. LANSOPRAZOLE [Concomitant]
  8. PIZOTIFEN (PIZOTIFEN) [Concomitant]
  9. DIDRONEL [Concomitant]
  10. ORAMORPH SR [Concomitant]

REACTIONS (2)
  - BASAL CELL CARCINOMA [None]
  - BOWEN'S DISEASE [None]
